FAERS Safety Report 7652822-1 (Version None)
Quarter: 2011Q3

REPORT INFORMATION
  Report Type: 
  Country: None (occurrence: None)
  Receive Date: 20110803
  Receipt Date: 20110722
  Transmission Date: 20111222
  Serious: Yes (Hospitalization)
  Sender: FDA-Public Use
  Company Number: FR-AMGEN-FRASP2011028791

PATIENT
  Age: 58 Year
  Sex: Male
  Weight: 86 kg

DRUGS (6)
  1. CELECTOL [Concomitant]
     Dosage: UNK
  2. ALLOPURINOL [Concomitant]
     Dosage: UNK
  3. CINACALCET HYDROCHLORIDE [Concomitant]
     Dosage: UNK
  4. FLODIL                             /00641902/ [Concomitant]
     Dosage: UNK
  5. ARANESP [Suspect]
     Indication: PRODUCT USED FOR UNKNOWN INDICATION
     Dosage: 40 UNK, QWK
     Route: 058
     Dates: start: 20081027
  6. RAMIPRIL [Concomitant]
     Dosage: UNK

REACTIONS (1)
  - PRIAPISM [None]
